FAERS Safety Report 7582279-0 (Version None)
Quarter: 2011Q2

REPORT INFORMATION
  Report Type: 
  Country: None (occurrence: None)
  Receive Date: 20110630
  Receipt Date: 20110128
  Transmission Date: 20111010
  Serious: Yes (Hospitalization)
  Sender: FDA-Public Use
  Company Number: US-BAYER-201039050NA

PATIENT
  Age: 25 Year
  Sex: Female
  Weight: 40.363 kg

DRUGS (14)
  1. PROZAC [Concomitant]
  2. PROTONIX [Concomitant]
     Indication: GASTROOESOPHAGEAL REFLUX DISEASE
     Dosage: 40 MG, UNK
  3. TRAZODONE HCL [Concomitant]
     Indication: INSOMNIA
     Dosage: 300 MG, UNK
  4. WELLBUTRIN [Concomitant]
  5. YAZ [Suspect]
     Indication: PREMENSTRUAL SYNDROME
     Dosage: UNK
     Dates: start: 20060101, end: 20070101
  6. YASMIN [Suspect]
     Indication: ACNE
     Route: 048
  7. STRATTERA [Concomitant]
     Indication: ATTENTION DEFICIT/HYPERACTIVITY DISORDER
  8. LEXAPRO [Concomitant]
     Indication: BIPOLAR DISORDER
     Dosage: 10 MG, UNK
  9. LAMICTAL [Concomitant]
  10. DROSPIRENONE AND ETHINYL ESTRADIOL [Suspect]
  11. YAZ [Suspect]
     Indication: ACNE
     Dosage: UNK
     Route: 048
     Dates: start: 20060928, end: 20071010
  12. NALTREXONE HYDROCHLORIDE [Concomitant]
  13. FOCALIN [Concomitant]
  14. KLONOPIN [Concomitant]
     Indication: INSOMNIA
     Dosage: 1 MG, UNK

REACTIONS (1)
  - PANCREATITIS [None]
